FAERS Safety Report 18544672 (Version 2)
Quarter: 2020Q4

REPORT INFORMATION
  Report Type: Spontaneous
  Country: US (occurrence: US)
  Receive Date: 20201125
  Receipt Date: 20201130
  Transmission Date: 20210114
  Serious: Yes (Hospitalization, Other)
  Sender: FDA-Public Use
  Company Number: US-SA-2020SA335410

PATIENT

DRUGS (9)
  1. VALGANCICLOVIR. [Concomitant]
     Active Substance: VALGANCICLOVIR
     Indication: INFECTION PROPHYLAXIS
     Dates: start: 201808
  2. METHYLPREDNISOLONE. [Suspect]
     Active Substance: METHYLPREDNISOLONE
     Indication: IMMUNOSUPPRESSION
     Dosage: PULSE-DOSE
     Dates: start: 201809
  3. IMMUNOGLOBULINS (IMMUNOGLOBULINS) (IVIG) [Suspect]
     Active Substance: HUMAN IMMUNOGLOBULIN G
     Indication: IMMUNOSUPPRESSION
     Dosage: UNK
     Route: 042
     Dates: start: 201809
  4. NYSTATIN. [Concomitant]
     Active Substance: NYSTATIN
     Indication: INFECTION PROPHYLAXIS
     Dosage: SWISH AND SWALLOW
     Dates: start: 201808
  5. TACROLIMUS. [Suspect]
     Active Substance: TACROLIMUS
     Indication: IMMUNOSUPPRESSION
     Dosage: UNK
     Dates: start: 201808
  6. MYCOPHENOLATE MOFETIL. [Suspect]
     Active Substance: MYCOPHENOLATE MOFETIL
     Indication: IMMUNOSUPPRESSION
     Dosage: UNK
     Dates: start: 201808
  7. ANTI-THYMOCYTE GLOBULIN (RABBIT) NOS [Suspect]
     Active Substance: LAPINE T-LYMPHOCYTE IMMUNE GLOBULIN
     Indication: IMMUNOSUPPRESSION
     Dosage: 4 DF
     Dates: start: 201808
  8. PREDNISONE. [Suspect]
     Active Substance: PREDNISONE
     Indication: IMMUNOSUPPRESSION
     Dosage: TAPER
     Route: 048
     Dates: start: 201809
  9. SULFAMETHOXAZOLE, TRIMETHOPRIM [Concomitant]
     Active Substance: SULFAMETHOXAZOLE\TRIMETHOPRIM
     Indication: INFECTION PROPHYLAXIS
     Dosage: SINGLE-STRENGTH
     Dates: start: 201808

REACTIONS (16)
  - Staphylococcal infection [Recovering/Resolving]
  - Dermatophytosis [Recovering/Resolving]
  - Lung opacity [Recovering/Resolving]
  - Skin plaque [Recovering/Resolving]
  - Postoperative wound infection [Recovered/Resolved]
  - Inflammation [Recovering/Resolving]
  - Skin mass [Recovering/Resolving]
  - Papule [Recovering/Resolving]
  - Abscess [Recovering/Resolving]
  - Trichophytosis [Recovering/Resolving]
  - Necrosis [Recovering/Resolving]
  - Pulmonary mass [Recovering/Resolving]
  - Rash erythematous [Recovering/Resolving]
  - Erythema [Recovering/Resolving]
  - Chronic papillomatous dermatitis [Recovering/Resolving]
  - Neutrophilic dermatosis [Recovering/Resolving]

NARRATIVE: CASE EVENT DATE: 201809
